FAERS Safety Report 6611147-3 (Version None)
Quarter: 2010Q1

REPORT INFORMATION
  Report Type: 
  Country: None (occurrence: None)
  Receive Date: 20100302
  Receipt Date: 20100302
  Transmission Date: 20100710
  Serious: Yes (Hospitalization)
  Sender: FDA-Public Use
  Company Number: None

PATIENT
  Age: 77 Year
  Sex: Female
  Weight: 50.6 kg

DRUGS (9)
  1. ASPIRIN [Suspect]
     Indication: AORTIC VALVE REPLACEMENT
     Dosage: DAILY PO CHRONIC
     Route: 048
  2. ASPIRIN [Suspect]
     Indication: MITRAL VALVE REPLACEMENT
     Dosage: DAILY PO CHRONIC
     Route: 048
  3. COUMADIN [Suspect]
     Indication: MITRAL VALVE REPLACEMENT
     Dosage: 8 MG DAILY PO
     Route: 048
  4. LOPRESSOR [Concomitant]
  5. CRESTOR [Concomitant]
  6. POTASSIUM CHLORIDE [Concomitant]
  7. SYNTHROID [Concomitant]
  8. NORVASC [Concomitant]
  9. LISINOPRIL [Concomitant]

REACTIONS (4)
  - GASTROINTESTINAL STOMA COMPLICATION [None]
  - HAEMORRHAGE [None]
  - HYPOKALAEMIA [None]
  - LOWER GASTROINTESTINAL HAEMORRHAGE [None]
